FAERS Safety Report 12459998 (Version 7)
Quarter: 2020Q4

REPORT INFORMATION
  Report Type: Spontaneous
  Country: US (occurrence: US)
  Receive Date: 20160613
  Receipt Date: 20201027
  Transmission Date: 20210113
  Serious: No
  Sender: FDA-Public Use
  Company Number: US-PFIZER INC-2013352965

PATIENT
  Age: 62 Year
  Sex: Female
  Weight: 61 kg

DRUGS (8)
  1. PREMARIN [Suspect]
     Active Substance: ESTROGENS, CONJUGATED
     Indication: BLOOD OESTROGEN DECREASED
     Dosage: 1.25 MG, 2X/DAY
     Route: 048
  2. PREMARIN [Suspect]
     Active Substance: ESTROGENS, CONJUGATED
     Indication: ADRENAL INSUFFICIENCY
     Dosage: 2 DF, DAILY (2 TABLETS A DAY)
  3. PREMARIN [Suspect]
     Active Substance: ESTROGENS, CONJUGATED
     Indication: HORMONE LEVEL ABNORMAL
     Dosage: UNK, TWICE A DAY
     Route: 048
     Dates: start: 20160517
  4. PREMARIN [Suspect]
     Active Substance: ESTROGENS, CONJUGATED
     Indication: HORMONE REPLACEMENT THERAPY
     Dosage: 1 DF, ALTERNATE DAY (TAKING 1 PREMARIN TABLET EVERY OTHER DAY)
  5. HYDROCORTISONE. [Concomitant]
     Active Substance: HYDROCORTISONE
     Indication: ADDISON^S DISEASE
     Dosage: 5 MG, 1X/DAY(10MG TABLET BY MOUTH, TAKES 1/2 TABLET OR 5MG ONCE A DAY)
     Route: 048
     Dates: start: 1995
  6. FLUDROCORTISONE [Concomitant]
     Active Substance: FLUDROCORTISONE
     Indication: ADDISON^S DISEASE
     Dosage: 0.05 MG, 1X/DAY (0.1MG TABLET BY MOUTH, TAKES 1/2 A TABLET, ONCE A DAY)
     Route: 048
     Dates: start: 1995
  7. PREMARIN [Suspect]
     Active Substance: ESTROGENS, CONJUGATED
     Dosage: 1.25 MG, DAILY
     Route: 048
  8. PREMARIN [Suspect]
     Active Substance: ESTROGENS, CONJUGATED
     Indication: ADDISON^S DISEASE
     Dosage: UNK
     Dates: start: 2000

REACTIONS (6)
  - Off label use [Unknown]
  - Therapeutic response unexpected [Unknown]
  - Weight increased [Unknown]
  - Dizziness [Unknown]
  - Nerve compression [Unknown]
  - Nausea [Unknown]
